FAERS Safety Report 15859941 (Version 1)
Quarter: 2019Q1

REPORT INFORMATION
  Report Type: Spontaneous
  Country: CA (occurrence: CA)
  Receive Date: 20190123
  Receipt Date: 20190123
  Transmission Date: 20190417
  Serious: Yes (Other)
  Sender: FDA-Public Use
  Company Number: CA-PURDUE PHARMA-CAN-2019-0009561

PATIENT
  Age: 43 Year
  Sex: Female

DRUGS (2)
  1. FOQUEST [Suspect]
     Active Substance: METHYLPHENIDATE HYDROCHLORIDE
     Indication: PRODUCT USED FOR UNKNOWN INDICATION
     Dosage: 50 MG, UNK
     Route: 065
  2. FOQUEST [Suspect]
     Active Substance: METHYLPHENIDATE HYDROCHLORIDE
     Dosage: 25 MG, UNK
     Route: 065

REACTIONS (12)
  - Musculoskeletal pain [Unknown]
  - Migraine [Unknown]
  - Chest pain [Unknown]
  - Nausea [Unknown]
  - Hypoaesthesia eye [Unknown]
  - Hypoaesthesia [Unknown]
  - Dizziness [Unknown]
  - Anxiety [Unknown]
  - Vision blurred [Unknown]
  - Dyspepsia [Unknown]
  - Blindness transient [Recovered/Resolved]
  - Dyspnoea [Unknown]
